FAERS Safety Report 8947043 (Version 1)
Quarter: 2012Q4

REPORT INFORMATION
  Report Type: 
  Country: US (occurrence: US)
  Receive Date: 20121205
  Receipt Date: 20121205
  Transmission Date: 20130627
  Serious: Yes (Other)
  Sender: FDA-Public Use
  Company Number: US-ASTRAZENECA-2012SE89367

PATIENT
  Age: 77 Year
  Sex: Female
  Weight: 57.2 kg

DRUGS (8)
  1. ATENOLOL [Suspect]
     Indication: HYPERTENSION
     Route: 048
  2. PULMICORT FLEXHALER [Suspect]
     Indication: ASTHMA
     Dosage: 180 MCG, TWO PUFFS, TWO TIMES A DAY
     Route: 055
  3. ALLEGRA [Concomitant]
     Indication: MULTIPLE ALLERGIES
     Dosage: DAILY
     Route: 048
  4. WARFARIN [Concomitant]
     Indication: CARDIAC DISORDER
     Dosage: 5 MG, FIVE TIMES WEEKLY
  5. WARFARIN [Concomitant]
     Indication: CARDIAC DISORDER
     Dosage: 2.5 MG, TWICE WEEKLY
     Route: 048
  6. SYNTHROID [Concomitant]
     Indication: THYROIDECTOMY
     Route: 048
     Dates: start: 1974
  7. DIOVAN [Concomitant]
     Indication: HYPERTENSION
     Route: 048
  8. ANTIBIOTIC [Concomitant]

REACTIONS (3)
  - Cartilage injury [Not Recovered/Not Resolved]
  - Nasal congestion [Not Recovered/Not Resolved]
  - Sinusitis [Recovered/Resolved]
